FAERS Safety Report 8992883 (Version 1)
Quarter: 2013Q1

REPORT INFORMATION
  Report Type: Spontaneous
  Country: DE (occurrence: DE)
  Receive Date: 20130102
  Receipt Date: 20130102
  Transmission Date: 20140127
  Serious: Yes (Other)
  Sender: FDA-Public Use
  Company Number: DE-JNJFOC-20121114409

PATIENT
  Age: 78 Year
  Sex: Male
  Weight: 76.19 kg

DRUGS (6)
  1. XARELTO [Suspect]
     Indication: HYPERTENSION
     Route: 048
  2. XARELTO [Suspect]
     Indication: ATRIAL FIBRILLATION
     Route: 048
  3. XARELTO [Suspect]
     Indication: CEREBROVASCULAR ACCIDENT PROPHYLAXIS
     Route: 048
  4. LORZAAR [Suspect]
     Indication: PRODUCT USED FOR UNKNOWN INDICATION
     Route: 065
  5. MULTAQ [Interacting]
     Indication: ATRIAL FIBRILLATION
     Route: 065
  6. CONCOR [Concomitant]
     Route: 065

REACTIONS (5)
  - Urogenital haemorrhage [Recovered/Resolved]
  - Abdominal pain upper [Recovered/Resolved]
  - Circulatory collapse [Recovered/Resolved]
  - Labelled drug-drug interaction medication error [Unknown]
  - Drug interaction [Unknown]
